FAERS Safety Report 8690800 (Version 3)
Quarter: 2013Q4

REPORT INFORMATION
  Report Type: Spontaneous
  Country: DE (occurrence: DE)
  Receive Date: 20120728
  Receipt Date: 20131031
  Transmission Date: 20140711
  Serious: Yes (Hospitalization)
  Sender: FDA-Public Use
  Company Number: DE-009507513-1207DEU009876

PATIENT
  Age: 45 Year
  Sex: Female

DRUGS (1)
  1. IMPLANON NXT [Suspect]
     Indication: CONTRACEPTION
     Dosage: UNK
     Route: 058
     Dates: start: 201111

REACTIONS (5)
  - Palpitations [Unknown]
  - Agitation [Unknown]
  - Blood pressure abnormal [Unknown]
  - Cardiovascular disorder [Unknown]
  - Anxiety [Unknown]
